FAERS Safety Report 23023937 (Version 1)
Quarter: 2023Q4

REPORT INFORMATION
  Report Type: Spontaneous
  Country: FR (occurrence: FR)
  Receive Date: 20231003
  Receipt Date: 20231003
  Transmission Date: 20240109
  Serious: Yes (Hospitalization, Other)
  Sender: FDA-Public Use
  Company Number: None

PATIENT
  Age: 46 Year
  Sex: Male
  Weight: 66 kg

DRUGS (5)
  1. ELIQUIS [Suspect]
     Active Substance: APIXABAN
     Indication: Atrial fibrillation
     Dosage: FREQUENCY TIME: 1 DAY
     Route: 048
     Dates: start: 20230403, end: 20230502
  2. AMISULPRIDE [Concomitant]
     Active Substance: AMISULPRIDE
     Indication: Psychotic disorder
     Route: 048
     Dates: start: 2022
  3. ATENOLOL [Concomitant]
     Active Substance: ATENOLOL
     Indication: Mitral valve prolapse
     Route: 048
     Dates: start: 2022
  4. BROMAZEPAM [Concomitant]
     Active Substance: BROMAZEPAM
     Indication: Anxiety
     Route: 048
     Dates: start: 2022
  5. AMIODARONE [Concomitant]
     Active Substance: AMIODARONE
     Indication: Atrial fibrillation
     Route: 048
     Dates: start: 20230403

REACTIONS (1)
  - Pericardial effusion [Recovered/Resolved]

NARRATIVE: CASE EVENT DATE: 20230501
